FAERS Safety Report 19705464 (Version 1)
Quarter: 2021Q3

REPORT INFORMATION
  Report Type: Spontaneous
  Country: DE (occurrence: DE)
  Receive Date: 20210816
  Receipt Date: 20210816
  Transmission Date: 20211014
  Serious: No
  Sender: FDA-Public Use
  Company Number: DE-HORMOSAN PHARMA GMBH-2021-06249

PATIENT
  Sex: Male
  Weight: 90 kg

DRUGS (2)
  1. SILDENAFIL?HORMOSAN 100 MG FILMTABLETTEN [Suspect]
     Active Substance: SILDENAFIL CITRATE
     Indication: ERECTILE DYSFUNCTION
     Dosage: UNK
     Route: 048
     Dates: start: 2019
  2. SILDENAFIL?HORMOSAN 100 MG FILMTABLETTEN [Suspect]
     Active Substance: SILDENAFIL CITRATE
     Dosage: UNK (USED CRUSHED TABLET)
     Route: 048
     Dates: start: 2019

REACTIONS (2)
  - Vertigo [Unknown]
  - Headache [Unknown]

NARRATIVE: CASE EVENT DATE: 2019
